FAERS Safety Report 5322356-8 (Version None)
Quarter: 2007Q2

REPORT INFORMATION
  Report Type: 
  Country: None (occurrence: None)
  Receive Date: 20070511
  Receipt Date: 20070508
  Transmission Date: 20071010
  Serious: Yes (Hospitalization)
  Sender: FDA-Public Use
  Company Number: US-ELI_LILLY_AND_COMPANY-US200705002084

PATIENT
  Sex: Female

DRUGS (8)
  1. HUMULIN N [Suspect]
     Indication: DIABETES MELLITUS
     Dosage: 10 U, EACH MORNING
     Dates: start: 19990101
  2. HUMULIN N [Suspect]
     Dosage: 5 U, EACH EVENING
     Dates: start: 19990101
  3. LASIX [Concomitant]
     Indication: FLUID RETENTION
  4. LANOXIN [Concomitant]
     Indication: HEART RATE IRREGULAR
  5. COUMADIN [Concomitant]
  6. ZOCOR [Concomitant]
     Indication: BLOOD CHOLESTEROL
  7. XANAX [Concomitant]
     Indication: NERVOUSNESS
  8. REGLAN [Concomitant]

REACTIONS (5)
  - BLOOD CHOLESTEROL [None]
  - BLOOD GLUCOSE INCREASED [None]
  - IMPAIRED GASTRIC EMPTYING [None]
  - PULMONARY OEDEMA [None]
  - WEIGHT DECREASED [None]
